FAERS Safety Report 24646488 (Version 2)
Quarter: 2024Q4

REPORT INFORMATION
  Report Type: Spontaneous
  Country: US (occurrence: US)
  Receive Date: 20241121
  Receipt Date: 20241121
  Transmission Date: 20250114
  Serious: No
  Sender: SANDOZ
  Company Number: US-SANDOZ-SDZ2024US096613

PATIENT
  Sex: Female

DRUGS (1)
  1. ESTRADIOL [Suspect]
     Active Substance: ESTRADIOL
     Indication: Product used for unknown indication
     Dosage: UNK, BIW
     Route: 065

REACTIONS (6)
  - Hot flush [Unknown]
  - Muscle spasms [Unknown]
  - Mood swings [Unknown]
  - Drug ineffective [Unknown]
  - Product adhesion issue [Unknown]
  - Product appearance confusion [Unknown]
